FAERS Safety Report 6152917-8 (Version None)
Quarter: 2009Q2

REPORT INFORMATION
  Report Type: 
  Country: None (occurrence: None)
  Receive Date: 20090413
  Receipt Date: 20090401
  Transmission Date: 20091009
  Serious: Yes (Death)
  Sender: FDA-Public Use
  Company Number: US-ELI_LILLY_AND_COMPANY-US200902004185

PATIENT
  Age: 87 Year
  Sex: Male
  Weight: 63.492 kg

DRUGS (7)
  1. CYMBALTA [Suspect]
     Indication: DEPRESSION
     Dosage: 20 MG, UNK
     Dates: start: 20060101
  2. CYMBALTA [Suspect]
     Dosage: 30 MG, DAILY (1/D)
     Dates: start: 20060101
  3. CYMBALTA [Suspect]
     Dosage: 60 MG, DAILY (1/D)
  4. CYMBALTA [Suspect]
     Dosage: 30 MG, DAILY (1/D)
  5. WARFARIN SODIUM [Concomitant]
     Indication: HYPERTENSION
  6. ATIVAN [Concomitant]
     Indication: ANXIETY
  7. MIRTAZAPINE [Concomitant]
     Indication: DEPRESSION

REACTIONS (4)
  - CONTUSION [None]
  - FAILURE TO THRIVE [None]
  - FALL [None]
  - INTERNATIONAL NORMALISED RATIO INCREASED [None]
